FAERS Safety Report 9287975 (Version 2)
Quarter: 2013Q3

REPORT INFORMATION
  Report Type: Spontaneous
  Country: US (occurrence: US)
  Receive Date: 20130514
  Receipt Date: 20130807
  Transmission Date: 20140515
  Serious: Yes (Hospitalization, Other)
  Sender: FDA-Public Use
  Company Number: US200910004070

PATIENT
  Age: 61 Year
  Sex: Male
  Weight: 83.9 kg

DRUGS (17)
  1. BYETTA [Suspect]
     Dates: start: 20060209, end: 20060429
  2. EXENATIDE UNK STRENGTH PEN, DISPOSABLE DEVICE [Concomitant]
  3. AVANDIA [Concomitant]
  4. GLUCOPHAGE [Concomitant]
     Dosage: TAB
  5. ALTACE [Concomitant]
  6. ZOCOR [Concomitant]
  7. TYLENOL [Concomitant]
  8. DIOVAN [Concomitant]
  9. LANTUS [Concomitant]
     Dosage: 1DF=100 UNITS
  10. HUMALOG [Concomitant]
     Dosage: 1DF=100 UNITS
  11. VITAMIN B6 [Concomitant]
  12. PHOLCODINE [Concomitant]
  13. WELCHOL [Concomitant]
     Route: 048
  14. BABY ASPIRIN [Concomitant]
  15. MULTIVITAMINS [Concomitant]
     Dosage: 1DF= 1TAB
  16. PREVACID [Concomitant]
  17. CIALIS [Concomitant]

REACTIONS (4)
  - Pancreatitis [Not Recovered/Not Resolved]
  - Cholecystitis acute [Not Recovered/Not Resolved]
  - Renal disorder [Unknown]
  - Abdominal hernia [Unknown]
